FAERS Safety Report 7836797-8 (Version None)
Quarter: 2011Q4

REPORT INFORMATION
  Report Type: 
  Country: None (occurrence: None)
  Receive Date: 20111024
  Receipt Date: 20101203
  Transmission Date: 20120403
  Serious: No
  Sender: FDA-Public Use
  Company Number: US-ABBOTT-10P-163-0689836-00

PATIENT
  Sex: Female
  Weight: 48.124 kg

DRUGS (2)
  1. NORETHINDRONE [Concomitant]
     Indication: PRODUCT USED FOR UNKNOWN INDICATION
  2. LUPRON DEPOT [Suspect]
     Indication: ENDOMETRIOSIS
     Dates: start: 20101202

REACTIONS (4)
  - HEADACHE [None]
  - CRYING [None]
  - PARAESTHESIA [None]
  - MENORRHAGIA [None]
